FAERS Safety Report 6407683-5 (Version None)
Quarter: 2009Q4

REPORT INFORMATION
  Report Type: 
  Country: None (occurrence: None)
  Receive Date: 20091020
  Receipt Date: 20091012
  Transmission Date: 20100525
  Serious: Yes (Other)
  Sender: FDA-Public Use
  Company Number: DE-ABBOTT-09P-062-0566098-00

PATIENT
  Sex: Male
  Weight: 66 kg

DRUGS (4)
  1. KALETRA [Suspect]
     Indication: HIV INFECTION
     Route: 048
     Dates: start: 20090120
  2. CAELYX [Suspect]
     Indication: KAPOSI'S SARCOMA
     Route: 042
     Dates: start: 20090205
  3. TRUVADA [Concomitant]
     Indication: HIV INFECTION
     Route: 048
     Dates: start: 20090120
  4. COTRIM FOTE [Concomitant]
     Indication: PROPHYLAXIS
     Route: 048

REACTIONS (3)
  - DYSPNOEA [None]
  - FEELING HOT [None]
  - SYNCOPE [None]
